FAERS Safety Report 5157990-1 (Version None)
Quarter: 2006Q4

REPORT INFORMATION
  Report Type: 
  Country: None (occurrence: None)
  Receive Date: 20061127
  Receipt Date: 20040916
  Transmission Date: 20070319
  Serious: Yes (Hospitalization)
  Sender: FDA-Public Use
  Company Number: ES-BOEHRINGER INGELHEIM PHARMACEUTICALS, INC.-2004-ES-00188ES

PATIENT
  Age: 48 Year
  Sex: Male

DRUGS (1)
  1. VIRAMUNE [Suspect]
     Indication: TAENIASIS
     Dosage: 200MG/DAY/PO FROM 15 JAN TO 29 JAN 2001 AND 400MG FROM 30 JAN TO 08 FEB 20
     Route: 048
     Dates: start: 20010115, end: 20010208

REACTIONS (5)
  - ARTHRALGIA [None]
  - ARTHRITIS [None]
  - PRURITUS [None]
  - PYREXIA [None]
  - RASH [None]
